FAERS Safety Report 7607450-0 (Version None)
Quarter: 2011Q3

REPORT INFORMATION
  Report Type: 
  Country: None (occurrence: None)
  Receive Date: 20110713
  Receipt Date: 20110704
  Transmission Date: 20111222
  Serious: Yes (Death)
  Sender: FDA-Public Use
  Company Number: NL-BAXTER-2011BH021826

PATIENT
  Age: 39 Year
  Sex: Male

DRUGS (2)
  1. DIANEAL [Suspect]
     Indication: DIABETIC NEPHROPATHY
     Route: 033
     Dates: end: 20110703
  2. EXTRANEAL [Suspect]
     Indication: DIABETIC NEPHROPATHY
     Route: 033
     Dates: end: 20110703

REACTIONS (2)
  - DEATH [None]
  - MALAISE [None]
